FAERS Safety Report 24968269 (Version 1)
Quarter: 2025Q1

REPORT INFORMATION
  Report Type: Report from Study
  Country: CA (occurrence: CA)
  Receive Date: 20250214
  Receipt Date: 20250214
  Transmission Date: 20250409
  Serious: Yes (Hospitalization)
  Sender: TAKEDA
  Company Number: CA-TAKEDA-2025TUS003536

PATIENT
  Sex: Female

DRUGS (8)
  1. VEDOLIZUMAB [Suspect]
     Active Substance: VEDOLIZUMAB
     Indication: Crohn^s disease
     Dates: start: 20190909, end: 20191021
  2. VEDOLIZUMAB [Suspect]
     Active Substance: VEDOLIZUMAB
  3. VEDOLIZUMAB [Suspect]
     Active Substance: VEDOLIZUMAB
  4. SPIRONOLACTONE [Suspect]
     Active Substance: SPIRONOLACTONE
     Indication: Cardiac disorder
  5. PREDNISONE [Concomitant]
     Active Substance: PREDNISONE
  6. EDECRIN [Concomitant]
     Active Substance: ETHACRYNIC ACID
     Dosage: UNK UNK, BID
  7. COUMADIN [Concomitant]
     Active Substance: WARFARIN SODIUM
  8. ZOFRAN [Concomitant]
     Active Substance: ONDANSETRON HYDROCHLORIDE
     Dates: start: 20250129, end: 20250130

REACTIONS (8)
  - Diarrhoea [Recovered/Resolved]
  - Vomiting [Recovered/Resolved]
  - Nausea [Recovered/Resolved]
  - Rash pruritic [Not Recovered/Not Resolved]
  - Malaise [Unknown]
  - Blood pressure abnormal [Unknown]
  - Taste disorder [Unknown]
  - Frequent bowel movements [Unknown]
